FAERS Safety Report 6643835-7 (Version None)
Quarter: 2010Q1

REPORT INFORMATION
  Report Type: 
  Country: None (occurrence: None)
  Receive Date: 20100322
  Receipt Date: 20100311
  Transmission Date: 20100710
  Serious: Yes (Other)
  Sender: FDA-Public Use
  Company Number: JP-JNJFOC-20100301366

PATIENT
  Age: 83 Year
  Sex: Female

DRUGS (12)
  1. CRAVIT [Suspect]
     Indication: ENTERITIS INFECTIOUS
     Route: 048
  2. AMLODIPINE [Concomitant]
     Indication: HYPERTENSION
     Route: 065
  3. DIOVAN [Concomitant]
     Indication: HYPERTENSION
     Route: 065
  4. PLAVIX [Concomitant]
     Indication: CEREBRAL INFARCTION
     Route: 065
  5. PLETAL [Concomitant]
     Indication: CEREBRAL INFARCTION
     Route: 065
  6. LAC B [Concomitant]
     Indication: CONSTIPATION
     Route: 065
  7. ALENAPION [Concomitant]
     Indication: ECZEMA
     Route: 065
  8. MILMAG [Concomitant]
     Indication: DRUG USE FOR UNKNOWN INDICATION
     Route: 065
  9. MYSER [Concomitant]
     Indication: ECZEMA
     Dosage: 2 IN ONE DAY
     Route: 065
  10. HYDROCORTISONE BUTYRATE [Concomitant]
     Indication: ECZEMA
     Dosage: 2 IN ONE DAY
     Route: 065
  11. CALONAL [Concomitant]
     Indication: PYREXIA
     Route: 065
  12. GLYCEROL 2.6% [Concomitant]
     Indication: ENTEROCOLITIS
     Route: 065

REACTIONS (7)
  - ABDOMINAL DISTENSION [None]
  - BLOOD CREATINE INCREASED [None]
  - ELECTROCARDIOGRAM QT PROLONGED [None]
  - MEDICATION ERROR [None]
  - OVERDOSE [None]
  - TACHYCARDIA [None]
  - VENTRICULAR EXTRASYSTOLES [None]
